FAERS Safety Report 5112917-3 (Version None)
Quarter: 2006Q3

REPORT INFORMATION
  Report Type: 
  Country: None (occurrence: None)
  Receive Date: 20060921
  Receipt Date: 20060921
  Transmission Date: 20061208
  Serious: Yes (Hospitalization)
  Sender: FDA-Public Use
  Company Number: None

PATIENT
  Sex: Male
  Weight: 83 kg

DRUGS (1)
  1. LITHIUM CARBONATE [Suspect]
     Indication: BIPOLAR DISORDER
     Dosage: SEE IMAGE
     Route: 048
     Dates: start: 20060821, end: 20060828

REACTIONS (16)
  - ACUTE PRERENAL FAILURE [None]
  - CATHETER RELATED COMPLICATION [None]
  - DELUSION [None]
  - HAEMOGLOBIN DECREASED [None]
  - HEART RATE INCREASED [None]
  - IRON BINDING CAPACITY TOTAL INCREASED [None]
  - MANIA [None]
  - OBSTRUCTION [None]
  - RENAL FAILURE [None]
  - SEDATION [None]
  - SERUM FERRITIN DECREASED [None]
  - SOMNOLENCE [None]
  - THERAPEUTIC AGENT TOXICITY [None]
  - THERAPY NON-RESPONDER [None]
  - TREATMENT NONCOMPLIANCE [None]
  - TREMOR [None]
